FAERS Safety Report 12189853 (Version 1)
Quarter: 2016Q1

REPORT INFORMATION
  Report Type: Spontaneous
  Country: US (occurrence: US)
  Receive Date: 20160318
  Receipt Date: 20160318
  Transmission Date: 20160526
  Serious: No
  Sender: FDA-Public Use
  Company Number: US-ACCORD-036860

PATIENT
  Sex: Female

DRUGS (1)
  1. ACCORD^S AMITRIPTYLINE [Suspect]
     Active Substance: AMITRIPTYLINE
     Indication: PRODUCT USED FOR UNKNOWN INDICATION
     Dosage: STRENGTH: 10 MG

REACTIONS (2)
  - Drug ineffective [Unknown]
  - Diarrhoea [Unknown]
